FAERS Safety Report 14267225 (Version 1)
Quarter: 2017Q4

REPORT INFORMATION
  Report Type: Spontaneous
  Country: US (occurrence: US)
  Receive Date: 20171211
  Receipt Date: 20171211
  Transmission Date: 20180321
  Serious: No
  Sender: FDA-Public Use
  Company Number: US-TEVA-824301ACC

PATIENT
  Age: 91 Year
  Sex: Female
  Weight: 63.49 kg

DRUGS (1)
  1. MUCUS DM [Suspect]
     Active Substance: DEXTROMETHORPHAN HYDROBROMIDE\GUAIFENESIN
     Indication: INCREASED UPPER AIRWAY SECRETION
     Dosage: GUAIFENESIN 1200 MG, DEXTROMETHORPHAN HYDROBROMIDE 60 MG
     Route: 048
     Dates: start: 201710, end: 201710

REACTIONS (1)
  - Retching [Unknown]

NARRATIVE: CASE EVENT DATE: 201710
